FAERS Safety Report 5456128-0 (Version None)
Quarter: 2007Q3

REPORT INFORMATION
  Report Type: 
  Country: None (occurrence: None)
  Receive Date: 20070918
  Receipt Date: 20070906
  Transmission Date: 20080115
  Serious: Yes (Hospitalization)
  Sender: FDA-Public Use
  Company Number: FR-BAYER-200710530BFR

PATIENT
  Sex: Male

DRUGS (3)
  1. CIFLOX [Suspect]
     Indication: PNEUMONIA
     Route: 048
     Dates: start: 20061201, end: 20061201
  2. CHEMOTHERAPEUTICS [Concomitant]
     Indication: WALDENSTROM'S MACROGLOBULINAEMIA
  3. CEFUROXIME [Concomitant]
     Indication: PNEUMONIA
     Dates: start: 20061201, end: 20061201

REACTIONS (3)
  - OEDEMA PERIPHERAL [None]
  - TENDON RUPTURE [None]
  - TENOSYNOVITIS [None]
